FAERS Safety Report 8837821 (Version 1)
Quarter: 2012Q4

REPORT INFORMATION
  Report Type: 
  Country: US (occurrence: US)
  Receive Date: 20121012
  Receipt Date: 20121012
  Transmission Date: 20130627
  Serious: Yes (Hospitalization, Other)
  Sender: FDA-Public Use
  Company Number: US-GENZYME-RENA-1001638

PATIENT
  Sex: Female

DRUGS (4)
  1. RENVELA [Suspect]
     Indication: HYPERPHOSPHATAEMIA
     Dosage: 7.2 g, qd (0.8 gram, 3 tablets with each meal)
     Route: 065
     Dates: start: 2010
  2. CALCIUM ACETATE [Concomitant]
     Indication: PRODUCT USED FOR UNKNOWN INDICATION
     Dosage: UNK (with meals and snacks)
     Route: 065
  3. THYROID REPLACEMENT MEDICATION [Concomitant]
     Indication: HYPOTHYROIDISM
     Dosage: UNK
     Route: 065
  4. ULORIC [Concomitant]
     Indication: GOUT
     Dosage: UNK
     Route: 065

REACTIONS (3)
  - Hip fracture [Unknown]
  - Colostomy [Unknown]
  - Faeces discoloured [Unknown]
